FAERS Safety Report 21399555 (Version 1)
Quarter: 2022Q4

REPORT INFORMATION
  Report Type: Spontaneous
  Country: DE (occurrence: DE)
  Receive Date: 20221001
  Receipt Date: 20221001
  Transmission Date: 20230113
  Serious: Yes (Hospitalization)
  Sender: FDA-Public Use
  Company Number: DE-ADRED-06978-04

PATIENT
  Age: 69 Year
  Sex: Male

DRUGS (10)
  1. OLANZAPINE [Suspect]
     Active Substance: OLANZAPINE
     Indication: Product used for unknown indication
     Dosage: 10 MG, 0.5-0-2-0
     Route: 065
  2. TORSEMIDE [Suspect]
     Active Substance: TORSEMIDE
     Indication: Product used for unknown indication
     Dosage: 10 MILLIGRAM DAILY; 10 MG, 1-0-0-0
  3. RISPERIDONE [Suspect]
     Active Substance: RISPERIDONE
     Indication: Product used for unknown indication
     Dosage: 1 MILLIGRAM DAILY; 1 MG, 0-0-1-0
  4. VALPROATE SODIUM [Suspect]
     Active Substance: VALPROATE SODIUM
     Indication: Product used for unknown indication
     Dosage: 300 MILLIGRAM DAILY; 300 MG, 1-0-0-0, RETARDED , FORM STRENGTH : 300 MG
  5. VALPROATE SODIUM [Suspect]
     Active Substance: VALPROATE SODIUM
     Dosage: 500 MILLIGRAM DAILY; 500 MG, 0-0-1-0, RETARDED , FORM STRENGTH : 500 MG
  6. LORAZEPAM [Concomitant]
     Active Substance: LORAZEPAM
     Indication: Product used for unknown indication
     Dosage: 2 MILLIGRAM DAILY; 1 MG, 1-0-1-0
  7. CHOLECALCIFEROL [Concomitant]
     Active Substance: CHOLECALCIFEROL
     Indication: Product used for unknown indication
     Dosage: 1 DOSAGE FORMS DAILY; 1000 IE / TAG, 1-0-0-0
  8. METHIONINE [Concomitant]
     Active Substance: METHIONINE
     Indication: Product used for unknown indication
     Dosage: 1000 MILLIGRAM DAILY; 500 MG, 1-0-1-0
  9. BIPERIDEN [Concomitant]
     Active Substance: BIPERIDEN
     Indication: Product used for unknown indication
     Dosage: 4 MILLIGRAM DAILY; 4 MG, 1-0-0-0
  10. macrogol/potassium chloride/sodium carbonate/sodium chloride [Concomitant]
     Indication: Product used for unknown indication
     Dosage: 2 DOSAGE FORMS DAILY; 1-1-0-0 , MACROGOL/KALIUMCHLORID/NATRIUMCARBONAT/NATRIUMCHLORID

REACTIONS (10)
  - Diarrhoea [Unknown]
  - General physical health deterioration [Unknown]
  - Aphasia [Unknown]
  - Depressed level of consciousness [Unknown]
  - Condition aggravated [Unknown]
  - Hyponatraemia [Unknown]
  - Gaze palsy [Unknown]
  - Anaemia [Unknown]
  - Electrolyte imbalance [Unknown]
  - Vomiting [Unknown]
